FAERS Safety Report 9585182 (Version 1)
Quarter: 2013Q4

REPORT INFORMATION
  Report Type: Spontaneous
  Country: US (occurrence: US)
  Receive Date: 20131002
  Receipt Date: 20131002
  Transmission Date: 20140711
  Serious: No
  Sender: FDA-Public Use
  Company Number: US-AMGEN-USASP2013062811

PATIENT
  Age: 50 Year
  Sex: Female

DRUGS (13)
  1. ENBREL [Suspect]
     Indication: PRODUCT USED FOR UNKNOWN INDICATION
     Dosage: 50 MG, QWK
     Route: 058
  2. RESTASIS [Concomitant]
     Dosage: 0.05 %, UNK
  3. AZASITE [Concomitant]
     Dosage: 1 %, UNK
  4. OASIS [Concomitant]
     Dosage: UNK
  5. VALACYCLOVIR [Concomitant]
     Dosage: 500 MG, UNK
  6. LEXAPRO [Concomitant]
     Dosage: 10 MG, UNK
  7. TRAMADOL HCL [Concomitant]
     Dosage: 50 MG, UNK
  8. CENTRUM                            /07499601/ [Concomitant]
     Dosage: UNK
  9. CALCIUM +D                         /00944201/ [Concomitant]
     Dosage: UNK
  10. GRAPE SEED                         /01364603/ [Concomitant]
     Dosage: UNK
  11. COQ-10 [Concomitant]
     Dosage: 100 MG, UNK
  12. VITAMIN B [Concomitant]
     Dosage: UNK
  13. VOLTAREN                           /00372301/ [Concomitant]
     Dosage: 1 %, UNK

REACTIONS (3)
  - Wrong technique in drug usage process [Unknown]
  - Injury associated with device [Not Recovered/Not Resolved]
  - Incorrect route of drug administration [Unknown]
